FAERS Safety Report 14251544 (Version 1)
Quarter: 2017Q4

REPORT INFORMATION
  Report Type: Spontaneous
  Country: US (occurrence: US)
  Receive Date: 20171205
  Receipt Date: 20171205
  Transmission Date: 20180321
  Serious: Yes (Hospitalization)
  Sender: FDA-Public Use
  Company Number: US-LUNDBECK-DKLU2040693

PATIENT
  Age: 82 Year
  Sex: Male

DRUGS (3)
  1. MIDODRINE [Concomitant]
     Active Substance: MIDODRINE
     Indication: PRODUCT USED FOR UNKNOWN INDICATION
     Route: 065
  2. SODIUM [Concomitant]
     Active Substance: SODIUM
     Indication: PRODUCT USED FOR UNKNOWN INDICATION
     Route: 065
  3. NORTHERA [Suspect]
     Active Substance: DROXIDOPA
     Indication: AUTONOMIC NEUROPATHY
     Dosage: SCHEDULE A
     Route: 048
     Dates: start: 20171124

REACTIONS (6)
  - Dyspnoea [Unknown]
  - Drug dose omission [Unknown]
  - Fluid retention [Unknown]
  - Wheezing [Unknown]
  - Pharyngeal oedema [Unknown]
  - Pallor [Unknown]

NARRATIVE: CASE EVENT DATE: 20171125
